FAERS Safety Report 15814294 (Version 1)
Quarter: 2019Q1

REPORT INFORMATION
  Report Type: Spontaneous
  Country: US (occurrence: US)
  Receive Date: 20190111
  Receipt Date: 20190111
  Transmission Date: 20190417
  Serious: Yes (Other)
  Sender: FDA-Public Use
  Company Number: US-TEVA-2019-US-995226

PATIENT
  Age: 44 Year

DRUGS (4)
  1. GABAPENTIN. [Concomitant]
     Active Substance: GABAPENTIN
  2. BUSPIRONE [Concomitant]
     Active Substance: BUSPIRONE HYDROCHLORIDE
  3. CLOZAPINE. [Suspect]
     Active Substance: CLOZAPINE
     Route: 065
  4. ESCITALOPRAM [Concomitant]
     Active Substance: ESCITALOPRAM OXALATE

REACTIONS (6)
  - Hallucination [Unknown]
  - Substance use [Unknown]
  - Psychotic disorder [Recovered/Resolved]
  - Delusion [Unknown]
  - Drug level increased [Unknown]
  - Alcohol use [Unknown]

NARRATIVE: CASE EVENT DATE: 20181010
